FAERS Safety Report 9106126 (Version 1)
Quarter: 2013Q1

REPORT INFORMATION
  Report Type: Spontaneous
  Country: US (occurrence: US)
  Receive Date: 20130220
  Receipt Date: 20130220
  Transmission Date: 20140127
  Serious: Yes (Other)
  Sender: FDA-Public Use
  Company Number: US-PFIZER INC-2013062671

PATIENT
  Age: 81 Year
  Sex: Male

DRUGS (10)
  1. SERTRALINE HCL [Suspect]
     Dosage: UNK
  2. FUROSEMIDE [Concomitant]
     Dosage: UNK
  3. SPIRONOLACTONE [Concomitant]
     Dosage: UNK
  4. GLYBURIDE [Concomitant]
     Dosage: UNK
  5. ALBUTEROL [Concomitant]
     Dosage: UNK
  6. SALMETEROL [Concomitant]
     Dosage: UNK
  7. BECLOMETHASONE DIPROPIONATE [Concomitant]
     Dosage: UNK
  8. MONTELUKAST [Concomitant]
     Dosage: UNK
  9. CLONAZEPAM [Concomitant]
     Dosage: UNK
  10. TRAZODONE [Concomitant]
     Dosage: UNK

REACTIONS (2)
  - Lymphomatoid papulosis [Recovered/Resolved]
  - Renal failure acute [Unknown]
